FAERS Safety Report 8262047-7 (Version None)
Quarter: 2012Q2

REPORT INFORMATION
  Report Type: 
  Country: None (occurrence: None)
  Receive Date: 20120405
  Receipt Date: 20120321
  Transmission Date: 20120825
  Serious: Yes (Life-Threatening, Hospitalization, Other)
  Sender: FDA-Public Use
  Company Number: ES-ROCHE-1018786

PATIENT
  Age: 51 Year
  Sex: Female

DRUGS (7)
  1. INDOMETHACIN [Concomitant]
     Indication: RHEUMATOID ARTHRITIS
     Route: 048
     Dates: start: 20051013
  2. SIMVASTATIN [Concomitant]
     Route: 048
  3. LEFLUNOMIDE [Concomitant]
     Indication: RHEUMATOID ARTHRITIS
     Route: 048
     Dates: start: 20070515
  4. ASPIRIN [Concomitant]
     Route: 048
     Dates: start: 20111111
  5. ACTEMRA [Suspect]
     Indication: RHEUMATOID ARTHRITIS
     Route: 042
     Dates: start: 20111010, end: 20111108
  6. ATENET [Concomitant]
  7. PLAVIX [Concomitant]
     Route: 048

REACTIONS (2)
  - MYOCARDIAL INFARCTION [None]
  - VENTRICULAR FIBRILLATION [None]
